FAERS Safety Report 22009843 (Version 1)
Quarter: 2023Q1

REPORT INFORMATION
  Report Type: Spontaneous
  Country: US (occurrence: US)
  Receive Date: 20230220
  Receipt Date: 20230220
  Transmission Date: 20230418
  Serious: Yes (Other)
  Sender: FDA-Public Use
  Company Number: US-AUROBINDO-AUR-APL-2023-007326

PATIENT

DRUGS (1)
  1. OLANZAPINE [Suspect]
     Active Substance: OLANZAPINE
     Indication: Product used for unknown indication
     Dosage: COMBINED WITH PARENTERAL UNSPECIFIED BENZODIAZEPINES
     Route: 065

REACTIONS (2)
  - Cardiovascular insufficiency [Unknown]
  - Off label use [Unknown]
